FAERS Safety Report 8142327 (Version 4)
Quarter: 2013Q1

REPORT INFORMATION
  Report Type: Report from Study
  Country: CH (occurrence: CH)
  Receive Date: 20110919
  Receipt Date: 20130215
  Transmission Date: 20140127
  Serious: Yes (Hospitalization)
  Sender: FDA-Public Use
  Company Number: CH-JNJFOC-20110808297

PATIENT
  Age: 70 Year
  Sex: Male
  Weight: 72 kg

DRUGS (10)
  1. ABIRATERONE ACETATE [Suspect]
     Route: 048
  2. ABIRATERONE ACETATE [Suspect]
     Indication: PROSTATE CANCER METASTATIC
     Route: 048
     Dates: start: 20110415, end: 20110816
  3. MARCOUMAR [Concomitant]
     Indication: PULMONARY EMBOLISM
     Route: 048
     Dates: start: 20110416
  4. TRANSTEC [Concomitant]
     Indication: TUMOUR PAIN
     Route: 062
     Dates: start: 20110415
  5. TRANSTEC [Concomitant]
     Indication: TUMOUR PAIN
     Route: 062
     Dates: start: 20110818
  6. GLUCOCORTICOID [Concomitant]
     Route: 048
     Dates: start: 201101
  7. GOSERELIN [Concomitant]
     Indication: PROSTATE CANCER
     Route: 058
     Dates: start: 20110906, end: 20110906
  8. NEXIUM [Concomitant]
     Route: 048
     Dates: start: 20110107
  9. INSPRA [Concomitant]
     Route: 048
     Dates: start: 20110421
  10. PREDNISONE [Concomitant]
     Indication: PROSTATE CANCER METASTATIC
     Route: 048
     Dates: start: 20110415

REACTIONS (7)
  - Chest pain [Recovered/Resolved with Sequelae]
  - Decreased appetite [Not Recovered/Not Resolved]
  - Fatigue [Recovered/Resolved with Sequelae]
  - Groin pain [Recovered/Resolved]
  - Arthralgia [Recovered/Resolved]
  - Back pain [Recovered/Resolved with Sequelae]
  - Tumour pain [Recovered/Resolved]
